APPROVED DRUG PRODUCT: HYDROFLUMETHIAZIDE
Active Ingredient: HYDROFLUMETHIAZIDE
Strength: 50MG
Dosage Form/Route: TABLET;ORAL
Application: A088850 | Product #001
Applicant: PAR PHARMACEUTICAL INC
Approved: May 31, 1985 | RLD: No | RS: No | Type: DISCN